FAERS Safety Report 5525991-7 (Version None)
Quarter: 2007Q4

REPORT INFORMATION
  Report Type: 
  Country: None (occurrence: None)
  Receive Date: 20071126
  Receipt Date: 20071108
  Transmission Date: 20080405
  Serious: No
  Sender: FDA-Public Use
  Company Number: US-BOEHRINGER INGELHEIM PHARMACEUTICALS, INC.-2007-BP-18410BP

PATIENT
  Age: 59 Year
  Sex: Female

DRUGS (10)
  1. SPIRIVA [Suspect]
     Indication: CHRONIC OBSTRUCTIVE PULMONARY DISEASE
     Route: 055
     Dates: start: 20060101
  2. UNIPHYL [Concomitant]
     Indication: CHRONIC OBSTRUCTIVE PULMONARY DISEASE
  3. ADVAIR DISKUS 100/50 [Concomitant]
     Indication: CHRONIC OBSTRUCTIVE PULMONARY DISEASE
  4. ALBUTEROL [Concomitant]
     Indication: CHRONIC OBSTRUCTIVE PULMONARY DISEASE
  5. LANOXIN [Concomitant]
     Indication: CARDIAC DISORDER
  6. TOPROL-XL [Concomitant]
     Indication: HYPERTENSION
  7. LORAZEPAM [Concomitant]
     Indication: ANXIETY
  8. ASPIRIN [Concomitant]
  9. LISINOPRIL [Concomitant]
     Indication: HYPERTENSION
  10. CHLORTHALIDONE [Concomitant]

REACTIONS (2)
  - DYSPNOEA [None]
  - VISION BLURRED [None]
